FAERS Safety Report 9840167 (Version 1)
Quarter: 2014Q1

REPORT INFORMATION
  Report Type: Report from Study
  Country: US (occurrence: US)
  Receive Date: 20140124
  Receipt Date: 20140124
  Transmission Date: 20141002
  Serious: Yes (Death)
  Sender: FDA-Public Use
  Company Number: US-ROCHE-1331796

PATIENT
  Age: 62 Year
  Sex: Female
  Weight: 66.74 kg

DRUGS (13)
  1. AVASTIN [Suspect]
     Indication: METASTATIC UTERINE CANCER
     Route: 065
     Dates: start: 20110321, end: 20110623
  2. AVASTIN [Suspect]
     Route: 042
     Dates: start: 20111107, end: 20120223
  3. AVASTIN [Suspect]
     Route: 042
     Dates: start: 20110725
  4. AVASTIN [Suspect]
     Route: 042
     Dates: start: 20120315
  5. SOLU-MEDROL [Concomitant]
     Route: 065
     Dates: start: 20110623
  6. DECADRON [Concomitant]
  7. TAXOL [Concomitant]
     Indication: METASTATIC UTERINE CANCER
     Dosage: 75 MG/M2
     Route: 042
     Dates: start: 20100114, end: 201005
  8. CARBOPLATIN [Concomitant]
     Indication: METASTATIC UTERINE CANCER
     Dosage: AUC 6
     Route: 042
     Dates: start: 20100114, end: 201005
  9. DOXIL (UNITED STATES) [Concomitant]
     Indication: METASTATIC UTERINE CANCER
     Route: 042
     Dates: start: 20110321, end: 20110623
  10. ABRAXANE [Concomitant]
     Indication: METASTATIC UTERINE CANCER
     Route: 042
     Dates: start: 20111107, end: 20120213
  11. ZOFRAN [Concomitant]
     Route: 065
  12. ZOFRAN [Concomitant]
     Route: 065
  13. CATAPRES [Concomitant]

REACTIONS (3)
  - Disease progression [Fatal]
  - Intestinal obstruction [Fatal]
  - Off label use [Unknown]
